FAERS Safety Report 18818028 (Version 2)
Quarter: 2021Q1

REPORT INFORMATION
  Report Type: Report from Study
  Country: HU (occurrence: HU)
  Receive Date: 20210201
  Receipt Date: 20210218
  Transmission Date: 20210419
  Serious: Yes (Other)
  Sender: FDA-Public Use
  Company Number: HU-JNJFOC-20210128978

PATIENT
  Age: 64 Year
  Sex: Female
  Weight: 58 kg

DRUGS (12)
  1. TRESUVI [Concomitant]
     Route: 058
     Dates: start: 20210118
  2. MIRZATEN [Concomitant]
     Active Substance: MIRTAZAPINE
     Dosage: IN THE EVENING
  3. SELEXIPAG [Suspect]
     Active Substance: SELEXIPAG
     Indication: PULMONARY ARTERIAL HYPERTENSION
     Route: 048
     Dates: start: 20201015, end: 20210118
  4. AMLODIPINE [Concomitant]
     Active Substance: AMLODIPINE BESYLATE
  5. FUROSEMIDE. [Concomitant]
     Active Substance: FUROSEMIDE
     Dosage: AT NOON
  6. FRAXIPARINE [Concomitant]
     Active Substance: NADROPARIN CALCIUM
  7. LEGALON [Concomitant]
     Active Substance: DIETARY SUPPLEMENT\HERBALS\MILK THISTLE
  8. MILURIT [Concomitant]
     Active Substance: ALLOPURINOL
  9. SYMBICORT [Concomitant]
     Active Substance: BUDESONIDE\FORMOTEROL FUMARATE DIHYDRATE
     Dosage: 1 PUFF (45/160 UG) IN THE MORNING
  10. CONTROLOC [Concomitant]
     Active Substance: PANTOPRAZOLE SODIUM
  11. ADCIRCA [Concomitant]
     Active Substance: TADALAFIL
     Dosage: IN THE MORNING
  12. KALDYUM [Concomitant]
     Active Substance: POTASSIUM CHLORIDE

REACTIONS (2)
  - Cardiac disorder [Recovering/Resolving]
  - Cachexia [Recovering/Resolving]

NARRATIVE: CASE EVENT DATE: 20210118
